FAERS Safety Report 7531149-2 (Version None)
Quarter: 2011Q2

REPORT INFORMATION
  Report Type: 
  Country: None (occurrence: None)
  Receive Date: 20110608
  Receipt Date: 20110527
  Transmission Date: 20111010
  Serious: Yes (Other)
  Sender: FDA-Public Use
  Company Number: BR-BAYER-2011-046350

PATIENT
  Age: 17 Year
  Sex: Female

DRUGS (2)
  1. YAZ [Suspect]
     Indication: SKIN DISORDER
     Dosage: UNK
     Route: 048
     Dates: start: 20101001
  2. YAZ [Suspect]
     Indication: MENSTRUATION IRREGULAR

REACTIONS (6)
  - TONGUE ULCERATION [None]
  - GLOSSODYNIA [None]
  - HYPERSENSITIVITY [None]
  - HERPES VIRUS INFECTION [None]
  - GLOSSITIS [None]
  - TONGUE DISORDER [None]
